FAERS Safety Report 21464884 (Version 3)
Quarter: 2022Q4

REPORT INFORMATION
  Report Type: Report from Study
  Country: CO (occurrence: CO)
  Receive Date: 20221017
  Receipt Date: 20221220
  Transmission Date: 20230113
  Serious: Yes (Hospitalization, Other)
  Sender: FDA-Public Use
  Company Number: CO-ASTELLAS-2022US003745

PATIENT
  Age: 51 Year
  Sex: Male

DRUGS (3)
  1. TACROLIMUS [Suspect]
     Active Substance: TACROLIMUS
     Indication: Renal transplant
     Dosage: 11 MG (2 TABS OF 5MG, 1 TAB OF 1 MG), ONCE DAILY
     Route: 048
     Dates: start: 20170814
  2. TACROLIMUS [Suspect]
     Active Substance: TACROLIMUS
     Dosage: 6 MG (5 MG AND 1 MG), ONCE DAILY
     Route: 048
     Dates: start: 202111
  3. TACROLIMUS [Suspect]
     Active Substance: TACROLIMUS
     Route: 048
     Dates: start: 202112

REACTIONS (5)
  - Pancreatitis [Recovering/Resolving]
  - COVID-19 [Recovering/Resolving]
  - Coma [Recovered/Resolved]
  - Post-acute COVID-19 syndrome [Recovering/Resolving]
  - Impaired gastric emptying [Recovering/Resolving]

NARRATIVE: CASE EVENT DATE: 20211003
